FAERS Safety Report 10591903 (Version 1)
Quarter: 2014Q4

REPORT INFORMATION
  Report Type: Spontaneous
  Country: GB (occurrence: GB)
  Receive Date: 20141119
  Receipt Date: 20141119
  Transmission Date: 20150529
  Serious: Yes (Disabling)
  Sender: FDA-Public Use
  Company Number: GB-MICRO LABS LIMITED-BB2014-00985

PATIENT
  Age: 69 Year
  Sex: Male

DRUGS (1)
  1. SIMVASTATIN. [Suspect]
     Active Substance: SIMVASTATIN
     Indication: BLOOD CHOLESTEROL INCREASED
     Dosage: UNK
     Route: 048

REACTIONS (9)
  - Quality of life decreased [Unknown]
  - Balance disorder [Unknown]
  - Self esteem decreased [None]
  - Social avoidant behaviour [None]
  - Asthenia [Unknown]
  - Fatigue [None]
  - Muscle spasms [Unknown]
  - Myalgia [Unknown]
  - Tenderness [Unknown]
